FAERS Safety Report 9160291 (Version 2)
Quarter: 2013Q1

REPORT INFORMATION
  Report Type: Spontaneous
  Country: US (occurrence: None)
  Receive Date: 20130220
  Receipt Date: 20130227
  Transmission Date: 20140127
  Serious: Yes (Other)
  Sender: FDA-Public Use
  Company Number: US-1196598

PATIENT
  Age: 52 Year
  Sex: Female

DRUGS (1)
  1. VIGAMOX [Suspect]
     Indication: CONJUNCTIVITIS INFECTIVE
     Dosage: THREE DROPS PER DAY.
     Route: 047
     Dates: end: 20130201

REACTIONS (3)
  - Diplopia [None]
  - VIth nerve paralysis [None]
  - Medication error [None]
